FAERS Safety Report 17317106 (Version 1)
Quarter: 2020Q1

REPORT INFORMATION
  Report Type: Spontaneous
  Country: US (occurrence: US)
  Receive Date: 20200124
  Receipt Date: 20200124
  Transmission Date: 20200409
  Serious: No
  Sender: FDA-Public Use
  Company Number: US-TARO-2019TAR00773

PATIENT
  Age: 25 Year
  Sex: Female
  Weight: 74.83 kg

DRUGS (2)
  1. CLOBETASOL PROPIONATE FOAM 0.05% [Suspect]
     Active Substance: CLOBETASOL PROPIONATE
     Indication: ECZEMA
     Dosage: ^A SMALL AMOUNT^, 2X/DAY (MORNING AND EVENING)
     Route: 061
     Dates: start: 20191105, end: 20191107
  2. PROBIOTICS [Concomitant]
     Active Substance: PROBIOTICS NOS

REACTIONS (4)
  - Therapeutic response unexpected [Recovered/Resolved]
  - Off label use [Recovered/Resolved]
  - Eczema [Not Recovered/Not Resolved]
  - Product quality issue [Not Recovered/Not Resolved]

NARRATIVE: CASE EVENT DATE: 201911
